FAERS Safety Report 12654610 (Version 1)
Quarter: 2016Q3

REPORT INFORMATION
  Report Type: Spontaneous
  Country: US (occurrence: US)
  Receive Date: 20160816
  Receipt Date: 20160816
  Transmission Date: 20161109
  Serious: No
  Sender: FDA-Public Use
  Company Number: US-DRREDDYS-USA/USA/15/0053286

PATIENT
  Age: 20 Month
  Sex: Female

DRUGS (1)
  1. AMOXICILLIN W/CLAVULANATE POTASSIUM ES-600 POWDER FOR ORAL SUSPENSION [Suspect]
     Active Substance: AMOXICILLIN\CLAVULANATE POTASSIUM
     Indication: PRODUCT USED FOR UNKNOWN INDICATION
     Route: 048
     Dates: start: 20151002

REACTIONS (2)
  - Incorrect product storage [Unknown]
  - No adverse event [Unknown]
